FAERS Safety Report 18436276 (Version 1)
Quarter: 2020Q4

REPORT INFORMATION
  Report Type: Spontaneous
  Country: US (occurrence: US)
  Receive Date: 20201028
  Receipt Date: 20201028
  Transmission Date: 20210114
  Serious: No
  Sender: FDA-Public Use
  Company Number: US-PFIZER INC-2020415601

PATIENT
  Age: 61 Year
  Sex: Male

DRUGS (2)
  1. PEGVISOMANT [Suspect]
     Active Substance: PEGVISOMANT
     Dosage: 20 MG, DAILY
     Dates: start: 20140606
  2. PEGVISOMANT [Suspect]
     Active Substance: PEGVISOMANT
     Dosage: 25 MG, DAILY

REACTIONS (1)
  - Insulin-like growth factor increased [Recovered/Resolved]
